FAERS Safety Report 6982480-0 (Version None)
Quarter: 2010Q3

REPORT INFORMATION
  Report Type: 
  Country: None (occurrence: None)
  Receive Date: 20100914
  Receipt Date: 20100206
  Transmission Date: 20110219
  Serious: No
  Sender: FDA-Public Use
  Company Number: US-PFIZER INC-2010018225

PATIENT
  Sex: Male
  Weight: 90.7 kg

DRUGS (5)
  1. LYRICA [Suspect]
     Indication: NEURALGIA
     Dosage: 150 MG, 1X/DAY
     Route: 048
     Dates: start: 20080211, end: 20081211
  2. LYRICA [Suspect]
     Indication: BACK INJURY
  3. CHANTIX [Concomitant]
     Indication: SMOKING CESSATION THERAPY
     Dosage: UNK
     Route: 048
  4. OXYCODONE HCL AND ACETAMINOPHEN [Concomitant]
     Indication: BACK PAIN
     Dosage: [OXYCODONE 10MG]/[ACETAMINOPHEN 325MG]
     Route: 048
  5. SKELAXIN [Concomitant]
     Indication: MYALGIA
     Dosage: 800 MG, UNK
     Route: 048

REACTIONS (1)
  - URTICARIA [None]
